FAERS Safety Report 9607421 (Version 1)
Quarter: 2013Q4

REPORT INFORMATION
  Report Type: Spontaneous
  Country: US (occurrence: None)
  Receive Date: 20131007
  Receipt Date: 20131007
  Transmission Date: 20140711
  Serious: Yes (Disabling)
  Sender: FDA-Public Use
  Company Number: None

PATIENT
  Age: 34 Year
  Sex: Female
  Weight: 54.43 kg

DRUGS (1)
  1. CIPROFLOXACIN [Suspect]
     Indication: CYSTITIS
     Route: 048
     Dates: start: 20130628, end: 20130702

REACTIONS (8)
  - Anxiety [None]
  - Paraesthesia [None]
  - Dyspnoea [None]
  - Dysuria [None]
  - Fear [None]
  - Arthralgia [None]
  - Pain in extremity [None]
  - Insomnia [None]
